FAERS Safety Report 23831754 (Version 1)
Quarter: 2024Q2

REPORT INFORMATION
  Report Type: Spontaneous
  Country: US (occurrence: None)
  Receive Date: 20240508
  Receipt Date: 20240508
  Transmission Date: 20240715
  Serious: Yes (Other)
  Sender: FDA-Public Use
  Company Number: 2024A103513

PATIENT
  Age: 342 Month
  Sex: Male
  Weight: 107 kg

DRUGS (11)
  1. FASENRA [Suspect]
     Active Substance: BENRALIZUMAB
     Indication: Asthma
     Dosage: 30ML/KG EVERY FOUR WEEKS
     Route: 058
     Dates: start: 20240409
  2. ATROVENT [Concomitant]
     Active Substance: IPRATROPIUM BROMIDE
  3. XOPENEX [Concomitant]
     Active Substance: LEVALBUTEROL HYDROCHLORIDE
  4. TUSNEL [Concomitant]
     Active Substance: DEXTROMETHORPHAN HYDROBROMIDE\GUAIFENESIN\PSEUDOEPHEDRINE HYDROCHLORIDE
  5. LEVALBUTEROL [Concomitant]
     Active Substance: LEVALBUTEROL
  6. DEXAMETHASONE [Concomitant]
     Active Substance: DEXAMETHASONE
  7. DOXYCYCLINE [Concomitant]
     Active Substance: DOXYCYCLINE
  8. BUSPIRONE [Concomitant]
     Active Substance: BUSPIRONE HYDROCHLORIDE
  9. CLONAZEPAM [Concomitant]
     Active Substance: CLONAZEPAM
  10. SINGULARE [Concomitant]
  11. CLARITIN [Concomitant]
     Active Substance: LORATADINE

REACTIONS (6)
  - Asphyxia [Recovering/Resolving]
  - Headache [Recovering/Resolving]
  - Discomfort [Recovering/Resolving]
  - Diarrhoea [Recovering/Resolving]
  - Administration site pain [Recovering/Resolving]
  - Cough [Recovering/Resolving]

NARRATIVE: CASE EVENT DATE: 20240401
